FAERS Safety Report 6611294-6 (Version None)
Quarter: 2010Q1

REPORT INFORMATION
  Report Type: 
  Country: None (occurrence: None)
  Receive Date: 20100302
  Receipt Date: 20100302
  Transmission Date: 20100710
  Serious: Yes (Hospitalization)
  Sender: FDA-Public Use
  Company Number: None

PATIENT
  Age: 82 Year
  Sex: Female

DRUGS (13)
  1. OXYCONTIN [Suspect]
     Dosage: 20 MG BID PO RECENT
     Route: 048
  2. OXYCODONE HCL [Suspect]
     Dosage: 5 MG Q4HR PRN PO CHRONIC
     Route: 048
  3. WARFARIN SODIUM [Concomitant]
  4. LEVOTHYROXINE [Concomitant]
  5. GLIMEPIRIDE [Concomitant]
  6. TYLENOL-500 [Concomitant]
  7. PRAVASTATIN [Concomitant]
  8. CLONAZEPAM [Concomitant]
  9. HYDROCHLOROTHIAZIDE [Concomitant]
  10. VIT D [Concomitant]
  11. COMPAZINE [Concomitant]
  12. CITALOPRAM HYDROBROMIDE [Concomitant]
  13. BISACODYL [Concomitant]

REACTIONS (5)
  - MENTAL STATUS CHANGES [None]
  - OVERDOSE [None]
  - PLEURAL EFFUSION [None]
  - RESPIRATORY DEPRESSION [None]
  - SOMNOLENCE [None]
